FAERS Safety Report 8465677-2 (Version None)
Quarter: 2012Q2

REPORT INFORMATION
  Report Type: 
  Country: None (occurrence: None)
  Receive Date: 20120620
  Receipt Date: 20120620
  Transmission Date: 20120825
  Serious: Yes (Other)
  Sender: FDA-Public Use
  Company Number: None

PATIENT
  Sex: Male
  Weight: 94.3482 kg

DRUGS (2)
  1. CITALOPRAM HYDROBROMIDE [Suspect]
     Indication: DEPRESSION
     Dosage: 40MG QAM PO
     Route: 048
     Dates: start: 20050128, end: 20061212
  2. CITALOPRAM HYDROBROMIDE [Suspect]
     Indication: ANXIETY
     Dosage: 40MG QAM PO
     Route: 048
     Dates: start: 20050128, end: 20061212

REACTIONS (2)
  - MOOD SWINGS [None]
  - PRODUCT SUBSTITUTION ISSUE [None]
